FAERS Safety Report 5412988-0 (Version None)
Quarter: 2007Q3

REPORT INFORMATION
  Report Type: 
  Country: None (occurrence: None)
  Receive Date: 20070813
  Receipt Date: 20070802
  Transmission Date: 20080115
  Serious: Yes (Hospitalization)
  Sender: FDA-Public Use
  Company Number: FR-PFIZER INC-2007058641

PATIENT
  Age: 77 Year
  Sex: Male

DRUGS (11)
  1. DALACINE [Suspect]
     Indication: ABSCESS
     Route: 048
  2. FUCIDINE [Suspect]
     Indication: ABSCESS
     Route: 048
  3. CARDENSIEL [Concomitant]
     Route: 048
  4. LASIX [Concomitant]
     Route: 048
  5. CORDARONE [Concomitant]
     Route: 048
  6. ALLOPURINOL [Concomitant]
     Indication: HYPERURICAEMIA
     Route: 048
  7. EFFEXOR [Concomitant]
  8. RABEPRAZOLE SODIUM [Concomitant]
  9. IRBESARTAN [Concomitant]
  10. PREVISCAN [Concomitant]
  11. CALCIPARINE [Concomitant]

REACTIONS (1)
  - RENAL FAILURE ACUTE [None]
